FAERS Safety Report 12843080 (Version 1)
Quarter: 2016Q4

REPORT INFORMATION
  Report Type: Spontaneous
  Country: IL (occurrence: IL)
  Receive Date: 20161013
  Receipt Date: 20161013
  Transmission Date: 20170207
  Serious: Yes (Death, Other)
  Sender: FDA-Public Use
  Company Number: IL-BAYER-2016-194662

PATIENT
  Age: 86 Year
  Sex: Male

DRUGS (2)
  1. ENOXAPARIN [Interacting]
     Active Substance: ENOXAPARIN
     Indication: MYOCARDIAL ISCHAEMIA
     Dosage: 40 MG, UNK
     Route: 058
  2. ACETYLSALICYLIC ACID({=100 MG) [Suspect]
     Active Substance: ASPIRIN
     Indication: MYOCARDIAL ISCHAEMIA
     Dosage: 100 MG, UNK
     Route: 048

REACTIONS (9)
  - Subdural haematoma [Fatal]
  - Head injury [None]
  - Syncope [None]
  - Labelled drug-drug interaction medication error [Fatal]
  - Fall [None]
  - Brain midline shift [Fatal]
  - Drug administration error [Fatal]
  - Craniocerebral injury [Fatal]
  - Coma [Fatal]
